FAERS Safety Report 13795233 (Version 2)
Quarter: 2017Q3

REPORT INFORMATION
  Report Type: Not Available
  Country: US (occurrence: US)
  Receive Date: 20170726
  Receipt Date: 20170920
  Transmission Date: 20171127
  Serious: No
  Sender: FDA-Public Use
  Company Number: US-NEUROCRINE BIOSCIENCES INC.-2017NBI00322

PATIENT
  Sex: Male
  Weight: 74.91 kg

DRUGS (2)
  1. INGREZZA [Suspect]
     Active Substance: VALBENAZINE
     Indication: TARDIVE DYSKINESIA
     Route: 048
     Dates: start: 20170605
  2. INGREZZA [Suspect]
     Active Substance: VALBENAZINE
     Dates: end: 20170719

REACTIONS (3)
  - Wrong technique in product usage process [Unknown]
  - Inappropriate prescribing [Unknown]
  - Adverse reaction [Unknown]
